FAERS Safety Report 5165127-8 (Version None)
Quarter: 2006Q4

REPORT INFORMATION
  Report Type: 
  Country: None (occurrence: None)
  Receive Date: 20061127
  Receipt Date: 20061115
  Transmission Date: 20070319
  Serious: Yes (Hospitalization)
  Sender: FDA-Public Use
  Company Number: HQWYE748416NOV06

PATIENT
  Age: 38 Year
  Sex: Female

DRUGS (1)
  1. AMIODARONE HCL [Suspect]
     Indication: ATRIAL FIBRILLATION
     Dosage: SINGLE UNKNOWN DOSE GIVEN AS A BOLUS INTRAVENOUS
     Route: 040

REACTIONS (8)
  - BASEDOW'S DISEASE [None]
  - CARDIAC ARREST [None]
  - CHEST X-RAY ABNORMAL [None]
  - PNEUMONIA ASPIRATION [None]
  - PULMONARY CONGESTION [None]
  - PULMONARY HYPERTENSION [None]
  - RIGHT VENTRICULAR FAILURE [None]
  - TRICUSPID VALVE INCOMPETENCE [None]
